FAERS Safety Report 23917204 (Version 2)
Quarter: 2024Q2

REPORT INFORMATION
  Report Type: Spontaneous
  Country: DE (occurrence: DE)
  Receive Date: 20240529
  Receipt Date: 20240617
  Transmission Date: 20240716
  Serious: Yes (Hospitalization)
  Sender: FDA-Public Use
  Company Number: DE-SAMSUNG BIOEPIS-SB-2024-15776

PATIENT
  Age: 77 Year
  Sex: Female
  Weight: 58 kg

DRUGS (15)
  1. TRASTUZUMAB [Suspect]
     Active Substance: TRASTUZUMAB
     Indication: Adenocarcinoma gastric
     Dosage: D1; 8MG/KG, IV; 6MG/KG IV D22/D43 PRE AND POST OP, AFTERWARDS 6MG/KG IV D1 Q3W?LAST DOSE BEFORE EVEN
     Route: 042
     Dates: start: 20240508
  2. PEMBROLIZUMAB [Suspect]
     Active Substance: PEMBROLIZUMAB
     Indication: Adenocarcinoma gastric
     Dosage: D1/D22/D43 PRE AND POST OP, AFTERWARDS D1 Q3W
     Route: 042
     Dates: start: 20240508
  3. OXALIPLATIN [Suspect]
     Active Substance: OXALIPLATIN
     Indication: Adenocarcinoma gastric
     Dosage: 85MG/M2, IV, D1/D15/D29 AND D43 PRE AND POST OP
     Route: 042
     Dates: start: 20240508
  4. OXALIPLATIN [Suspect]
     Active Substance: OXALIPLATIN
     Dosage: 85MG/M2, IV, D1/D15/D29 AND D43 PRE AND POST OP, LAST DOSE BEFORE EVENTS WAS ON 27 MAY 2024
     Route: 042
     Dates: start: 20240527
  5. LEUCOVORIN [Suspect]
     Active Substance: LEUCOVORIN\LEUCOVORIN CALCIUM
     Indication: Product used for unknown indication
     Dosage: 200MG/M2, IV, D1/D15/D29 AND D43 PRE AND MED POST OP
     Route: 042
     Dates: start: 20240508
  6. LEUCOVORIN [Suspect]
     Active Substance: LEUCOVORIN\LEUCOVORIN CALCIUM
     Dosage: 200MG/M2, IV, D1/D15/D29 AND D43 PRE AND MED POST OP, LAST DOSE BEFORE EVENTS WAS ON 27 MAY 2024
     Route: 042
     Dates: start: 20240527
  7. FLUOROURACIL [Suspect]
     Active Substance: FLUOROURACIL
     Indication: Adenocarcinoma gastric
     Dosage: 2600MG/M2, IV, D1/D15/D29 AND D43 PRE AND POST OP
     Route: 042
     Dates: start: 20240508
  8. FLUOROURACIL [Suspect]
     Active Substance: FLUOROURACIL
     Dosage: 2600MG/M2, IV, D1/D15/D29 AND D43 PRE AND POST OP, LAST DOSE BEFORE EVENTS WAS ON 27 MAY 2024
     Route: 042
     Dates: start: 20240527
  9. DOCETAXEL [Suspect]
     Active Substance: DOCETAXEL\DOCETAXEL ANHYDROUS
     Indication: Adenocarcinoma gastric
     Dosage: 50MG/M2, IV, D1/D15/D29 AND D43 PRE AND POST OP
     Route: 042
     Dates: start: 20240508
  10. DOCETAXEL [Suspect]
     Active Substance: DOCETAXEL\DOCETAXEL ANHYDROUS
     Dosage: 50MG/M2, IV, D1/D15/D29 AND D43 PRE AND POST OP, LAST DOSE BEFORE EVENTS WAS ON 27 MAY 2024
     Route: 042
     Dates: start: 20240527
  11. RAMIPRIL [Concomitant]
     Active Substance: RAMIPRIL
     Indication: Product used for unknown indication
     Dosage: 1-0-1
     Route: 065
  12. PANTOPRAZOLE [Concomitant]
     Active Substance: PANTOPRAZOLE
     Indication: Product used for unknown indication
     Dosage: 1-0-1
     Route: 065
  13. SODIUM PICOSULFATE [Concomitant]
     Active Substance: SODIUM PICOSULFATE
     Indication: Constipation
     Dosage: 7.5 MG/ML, 15 DROPS AT NIGHT
     Route: 065
  14. TORSEMIDE [Concomitant]
     Active Substance: TORSEMIDE
     Indication: Product used for unknown indication
     Dosage: 1-0-0
     Route: 065
  15. AMLODIPINE [Concomitant]
     Active Substance: AMLODIPINE BESYLATE
     Indication: Product used for unknown indication
     Dosage: 1-0-0
     Route: 065

REACTIONS (8)
  - Diarrhoea [Not Recovered/Not Resolved]
  - Nausea [Not Recovered/Not Resolved]
  - Decreased appetite [Not Recovered/Not Resolved]
  - Weight decreased [Not Recovered/Not Resolved]
  - Vomiting [Not Recovered/Not Resolved]
  - Inflammation [Not Recovered/Not Resolved]
  - Leukocytosis [Not Recovered/Not Resolved]
  - Dysphagia [Not Recovered/Not Resolved]

NARRATIVE: CASE EVENT DATE: 20240512
